FAERS Safety Report 5144567-7 (Version None)
Quarter: 2006Q4

REPORT INFORMATION
  Report Type: 
  Country: None (occurrence: None)
  Receive Date: 20061031
  Receipt Date: 20061020
  Transmission Date: 20070319
  Serious: Yes (Other)
  Sender: FDA-Public Use
  Company Number: 2006115343

PATIENT
  Age: 59 Year
  Sex: Male
  Weight: 93 kg

DRUGS (9)
  1. AMLODIPINE [Suspect]
     Indication: HYPERTENSION
     Dosage: 10 MG (10 MG, 1 IN 1 D), ORAL
     Route: 048
     Dates: start: 20060104
  2. METFORMIN HCL [Concomitant]
  3. GLYBURIDE [Concomitant]
  4. MEDIATOR (BENFLUOREX HYDROCHLORIDE) [Concomitant]
  5. MODOPAR (BENSERAZIDE HYDROCHLORIDE, LEVODOPA) [Concomitant]
  6. LASIX [Concomitant]
  7. ASPIRIN [Concomitant]
  8. TAREG (VALSARTAN) [Concomitant]
  9. ACETAMINOPHEN [Concomitant]

REACTIONS (3)
  - ERECTILE DYSFUNCTION [None]
  - HYPERPROLACTINAEMIA [None]
  - LEUKOENCEPHALOPATHY [None]
